FAERS Safety Report 10164939 (Version 1)
Quarter: 2014Q2

REPORT INFORMATION
  Report Type: Spontaneous
  Country: US (occurrence: US)
  Receive Date: 20140510
  Receipt Date: 20140510
  Transmission Date: 20141212
  Serious: No
  Sender: FDA-Public Use
  Company Number: US-BRISTOL-MYERS SQUIBB COMPANY-19597749

PATIENT
  Age: 64 Year
  Sex: Female
  Weight: 87.07 kg

DRUGS (11)
  1. BYETTA [Suspect]
  2. INSULIN 70/30 [Concomitant]
     Dosage: 1DF:25U SQ DAILY AND 20U SQ DAILY
     Route: 058
  3. FLEXERIL [Concomitant]
  4. LISINOPRIL + HCTZ [Concomitant]
     Dosage: 1DF:20/12.5MG
  5. PRAVASTATIN SODIUM [Concomitant]
  6. MELOXICAM [Concomitant]
  7. FERROUS SULFATE [Concomitant]
  8. POTASSIUM [Concomitant]
  9. ASPIRIN [Concomitant]
  10. VITAMIN [Concomitant]
  11. FISH OIL [Concomitant]

REACTIONS (1)
  - Hypersensitivity [Unknown]
